FAERS Safety Report 12670351 (Version 1)
Quarter: 2016Q3

REPORT INFORMATION
  Report Type: Spontaneous
  Country: FR (occurrence: FR)
  Receive Date: 20160822
  Receipt Date: 20160822
  Transmission Date: 20161109
  Serious: Yes (Hospitalization, Other)
  Sender: FDA-Public Use
  Company Number: FR-GLAXOSMITHKLINE-FR2016GSK119193

PATIENT
  Age: 75 Year
  Sex: Male

DRUGS (11)
  1. MACROGOL [Concomitant]
     Active Substance: POLYETHYLENE GLYCOLS
  2. VOLTARENE [Suspect]
     Active Substance: DICLOFENAC SODIUM
     Indication: ARTHRALGIA
     Dosage: UNK
     Route: 048
  3. PANTOPRAZOLE [Concomitant]
     Active Substance: PANTOPRAZOLE SODIUM
  4. STABLON [Concomitant]
     Active Substance: TIANEPTINE
  5. COLCHICINE. [Concomitant]
     Active Substance: COLCHICINE
  6. IXPRIM [Concomitant]
     Active Substance: ACETAMINOPHEN\TRAMADOL HYDROCHLORIDE
  7. FLECAINE [Concomitant]
     Active Substance: FLECAINIDE
  8. OLMETEC [Concomitant]
     Active Substance: OLMESARTAN MEDOXOMIL
  9. NEBIVOLOL. [Concomitant]
     Active Substance: NEBIVOLOL
  10. TADENAN [Concomitant]
     Active Substance: PYGEUM
  11. SPAGULAX [Concomitant]
     Active Substance: PLANTAGO OVATA SEED

REACTIONS (2)
  - Rectal haemorrhage [Recovered/Resolved]
  - Diverticulum intestinal haemorrhagic [Recovered/Resolved]

NARRATIVE: CASE EVENT DATE: 20141008
